FAERS Safety Report 5285674-8 (Version None)
Quarter: 2007Q1

REPORT INFORMATION
  Report Type: 
  Country: None (occurrence: None)
  Receive Date: 20070126
  Receipt Date: 20061227
  Transmission Date: 20070707
  Serious: No
  Sender: FDA-Public Use
  Company Number: 012755

PATIENT
  Age: 55 Year
  Sex: Male

DRUGS (3)
  1. PRIALT [Suspect]
     Indication: PAIN
     Dosage: SEE IMAGE
     Route: 037
     Dates: end: 20061201
  2. PRIALT [Suspect]
     Indication: PAIN
     Dosage: SEE IMAGE
     Route: 037
     Dates: start: 20061201
  3. NYSTATIN [Concomitant]

REACTIONS (3)
  - DYSGEUSIA [None]
  - ORAL FUNGAL INFECTION [None]
  - PARAESTHESIA ORAL [None]
